FAERS Safety Report 13054025 (Version 1)
Quarter: 2016Q4

REPORT INFORMATION
  Report Type: Spontaneous
  Country: US (occurrence: US)
  Receive Date: 20161222
  Receipt Date: 20161222
  Transmission Date: 20170207
  Serious: Yes (Hospitalization)
  Sender: FDA-Public Use
  Company Number: None

PATIENT
  Age: 62 Year
  Sex: Male
  Weight: 59.2 kg

DRUGS (12)
  1. ATIVAN [Concomitant]
     Active Substance: LORAZEPAM
  2. BREO ELLIPTA [Concomitant]
     Active Substance: FLUTICASONE FUROATE\VILANTEROL TRIFENATATE
  3. VENTOLIN HFA [Concomitant]
     Active Substance: ALBUTEROL SULFATE
  4. PEMBROLIZUMAB. [Concomitant]
     Active Substance: PEMBROLIZUMAB
  5. MEMANTINE HYDROCHLORIDE. [Suspect]
     Active Substance: MEMANTINE HYDROCHLORIDE
     Dates: end: 20161218
  6. COMBIVENT RESPIMAT [Concomitant]
     Active Substance: ALBUTEROL SULFATE\IPRATROPIUM BROMIDE
  7. CIPROFLOXACIN. [Concomitant]
     Active Substance: CIPROFLOXACIN
  8. AMBIEN [Concomitant]
     Active Substance: ZOLPIDEM TARTRATE
  9. LANTUS [Concomitant]
     Active Substance: INSULIN GLARGINE
  10. PREDNISONE. [Concomitant]
     Active Substance: PREDNISONE
  11. CREON [Concomitant]
     Active Substance: PANCRELIPASE AMYLASE\PANCRELIPASE LIPASE\PANCRELIPASE PROTEASE
  12. NOVOLOG [Concomitant]
     Active Substance: INSULIN ASPART

REACTIONS (9)
  - Dyspnoea exertional [None]
  - Pulmonary mass [None]
  - Lung infiltration [None]
  - Atelectasis [None]
  - Lymphadenopathy mediastinal [None]
  - Neoplasm progression [None]
  - Hilar lymphadenopathy [None]
  - Metastases to central nervous system [None]
  - Pleural effusion [None]

NARRATIVE: CASE EVENT DATE: 20161218
